FAERS Safety Report 21891036 (Version 3)
Quarter: 2023Q2

REPORT INFORMATION
  Report Type: Spontaneous
  Country: US (occurrence: US)
  Receive Date: 20230120
  Receipt Date: 20230411
  Transmission Date: 20230722
  Serious: Yes (Hospitalization, Other)
  Sender: FDA-Public Use
  Company Number: US-PFIZER INC-202300021570

PATIENT
  Age: 80 Year
  Sex: Female
  Weight: 66.68 kg

DRUGS (1)
  1. PAXLOVID [Suspect]
     Active Substance: NIRMATRELVIR\RITONAVIR
     Indication: COVID-19 treatment
     Dosage: [PF-07321332 300 MG]/[RITONAVIR 100 MG]; 2X/DAY
     Dates: start: 20230115, end: 202301

REACTIONS (7)
  - Neuropathy peripheral [Recovered/Resolved]
  - Pain in extremity [Not Recovered/Not Resolved]
  - Dysgeusia [Recovering/Resolving]
  - Restless legs syndrome [Not Recovered/Not Resolved]
  - Insomnia [Recovered/Resolved]
  - Frequent bowel movements [Unknown]
  - Fatigue [Unknown]

NARRATIVE: CASE EVENT DATE: 20230101
